FAERS Safety Report 12467988 (Version 3)
Quarter: 2016Q4

REPORT INFORMATION
  Report Type: Spontaneous
  Country: FR (occurrence: FR)
  Receive Date: 20160615
  Receipt Date: 20161114
  Transmission Date: 20170207
  Serious: Yes (Hospitalization, Other)
  Sender: FDA-Public Use
  Company Number: FR-SA-2016SA109700

PATIENT
  Age: 44 Year
  Sex: Female

DRUGS (2)
  1. AUBAGIO [Suspect]
     Active Substance: TERIFLUNOMIDE
     Route: 065
     Dates: start: 201501, end: 2016
  2. AUBAGIO [Suspect]
     Active Substance: TERIFLUNOMIDE
     Route: 065
     Dates: start: 201609

REACTIONS (4)
  - Acute respiratory distress syndrome [Recovered/Resolved]
  - Acute respiratory failure [Unknown]
  - Infection [Unknown]
  - Dyspnoea [Recovered/Resolved]

NARRATIVE: CASE EVENT DATE: 201605
